FAERS Safety Report 8633597 (Version 2)
Quarter: 2013Q2

REPORT INFORMATION
  Report Type: Spontaneous
  Country: US (occurrence: US)
  Receive Date: 20120625
  Receipt Date: 20130429
  Transmission Date: 20140414
  Serious: No
  Sender: FDA-Public Use
  Company Number: US-ASTRAZENECA-2012SE15394

PATIENT
  Age: 40 Year
  Sex: Female

DRUGS (5)
  1. SYMBICORT PMDI [Suspect]
     Indication: ASTHMA
     Dosage: UNKNOWN DOSE AND FREQUENCY
     Route: 055
  2. NEXIUM [Suspect]
     Indication: ULCER
     Route: 048
  3. NEXIUM [Suspect]
     Indication: ULCER
     Route: 048
  4. OMEPRAZOLE [Suspect]
     Route: 048
  5. PRO-AIR [Concomitant]

REACTIONS (9)
  - Pain [Unknown]
  - Abdominal distension [Unknown]
  - Ulcer [Unknown]
  - Gastric disorder [Unknown]
  - Multiple allergies [Unknown]
  - Bronchitis [Unknown]
  - Dyspepsia [Unknown]
  - Anxiety [Unknown]
  - Drug dose omission [Unknown]
